FAERS Safety Report 16051214 (Version 1)
Quarter: 2019Q1

REPORT INFORMATION
  Report Type: Spontaneous
  Country: US (occurrence: US)
  Receive Date: 20190308
  Receipt Date: 20190308
  Transmission Date: 20190418
  Serious: No
  Sender: FDA-Public Use
  Company Number: US-TEVA-2019-US-1012146

PATIENT
  Age: 21 Month
  Sex: Female

DRUGS (1)
  1. AZITHROMYCIN FOR ORAL SUSPENSION, USP [Suspect]
     Active Substance: AZITHROMYCIN
     Route: 048

REACTIONS (3)
  - Product dispensing error [Unknown]
  - Expired product administered [Unknown]
  - Rash [Unknown]

NARRATIVE: CASE EVENT DATE: 20190206
